FAERS Safety Report 20602078 (Version 1)
Quarter: 2022Q1

REPORT INFORMATION
  Report Type: Spontaneous
  Country: PL (occurrence: None)
  Receive Date: 20220316
  Receipt Date: 20220316
  Transmission Date: 20220423
  Serious: Yes (Other)
  Sender: FDA-Public Use
  Company Number: PL-AMGEN-POLSP2020162842

PATIENT
  Age: 67 Year
  Sex: Male

DRUGS (4)
  1. OXALIPLATIN [Suspect]
     Active Substance: OXALIPLATIN
     Indication: Colon cancer metastatic
     Dosage: UNK?FOLFOX
     Route: 065
     Dates: start: 20190807, end: 2020
  2. PANITUMUMAB [Suspect]
     Active Substance: PANITUMUMAB
     Indication: Colon cancer metastatic
     Dosage: UNK
     Route: 065
  3. PANITUMUMAB [Suspect]
     Active Substance: PANITUMUMAB
     Dosage: UNK
     Route: 065
     Dates: start: 20190807
  4. FLUOROURACIL\LEUCOVORIN [Suspect]
     Active Substance: FLUOROURACIL\LEUCOVORIN
     Indication: Colon cancer metastatic
     Dosage: UNK
     Route: 065
     Dates: start: 20200218, end: 2020

REACTIONS (4)
  - Thrombocytopenia [Unknown]
  - Dermatitis acneiform [Not Recovered/Not Resolved]
  - Diarrhoea [Unknown]
  - Neutropenia [Unknown]

NARRATIVE: CASE EVENT DATE: 20190101
